FAERS Safety Report 4682093-X (Version None)
Quarter: 2005Q2

REPORT INFORMATION
  Report Type: 
  Country: None (occurrence: None)
  Receive Date: 20050602
  Receipt Date: 20050601
  Transmission Date: 20051028
  Serious: Yes (Other)
  Sender: FDA-Public Use
  Company Number: S05-UKI-01324-01

PATIENT
  Age: 78 Year
  Sex: Male

DRUGS (4)
  1. CIPRALEX (ESCITALOPRAM) [Suspect]
     Indication: DEPRESSION
     Dosage: 10 MG QD PO
     Route: 048
     Dates: start: 20041001, end: 20050301
  2. ADALAT [Concomitant]
  3. HALOPERIDOL [Concomitant]
  4. BENDROFLUAZIDE [Concomitant]

REACTIONS (16)
  - ADAMS-STOKES SYNDROME [None]
  - AMNESIA [None]
  - ARRHYTHMIA [None]
  - ATRIOVENTRICULAR BLOCK FIRST DEGREE [None]
  - BALANCE DISORDER [None]
  - BLOOD POTASSIUM DECREASED [None]
  - BLOOD THYROID STIMULATING HORMONE INCREASED [None]
  - BUNDLE BRANCH BLOCK RIGHT [None]
  - DYSARTHRIA [None]
  - DYSPHASIA [None]
  - DYSPNOEA [None]
  - FALL [None]
  - GASTROENTERITIS [None]
  - MALAISE [None]
  - TREATMENT NONCOMPLIANCE [None]
  - VITAMIN B12 DECREASED [None]
